FAERS Safety Report 13230361 (Version 1)
Quarter: 2017Q1

REPORT INFORMATION
  Report Type: Spontaneous
  Country: US (occurrence: US)
  Receive Date: 20170214
  Receipt Date: 20170214
  Transmission Date: 20170428
  Serious: No
  Sender: FDA-Public Use
  Company Number: None

PATIENT
  Age: 34 Year
  Sex: Female
  Weight: 99 kg

DRUGS (2)
  1. CEPACOL EXTRA STRENGTH SORE THROAT HONEY LEMON [Suspect]
     Active Substance: BENZOCAINE\MENTHOL
     Indication: OROPHARYNGEAL PAIN
     Dosage: ?          QUANTITY:2 TABLET(S);?
     Route: 048
     Dates: start: 20170211, end: 20170213
  2. AMOXICILLIN. [Concomitant]
     Active Substance: AMOXICILLIN

REACTIONS (4)
  - Somnolence [None]
  - Panic reaction [None]
  - Dyspnoea [None]
  - Wrong technique in product usage process [None]

NARRATIVE: CASE EVENT DATE: 20170213
